FAERS Safety Report 4639264-8 (Version None)
Quarter: 2005Q2

REPORT INFORMATION
  Report Type: 
  Country: None (occurrence: None)
  Receive Date: 20050418
  Receipt Date: 20050404
  Transmission Date: 20051028
  Serious: Yes (Other)
  Sender: FDA-Public Use
  Company Number: 2005054809

PATIENT
  Age: 30 Year
  Sex: Male
  Weight: 95.2554 kg

DRUGS (2)
  1. DILANTIN [Suspect]
     Indication: CONVULSION
     Dosage: 600 MG (3 IN 1 D), ORAL
     Route: 048
     Dates: start: 20010101
  2. WICK FORMEL 44 PLUS (DEXTROMETHORPHAN HYDROBROMIDE, PARACETAMOL) [Suspect]
     Indication: NASOPHARYNGITIS
     Dosage: (1 IN 1 D), ORAL
     Route: 048
     Dates: start: 20050312, end: 20050317

REACTIONS (3)
  - ANTICONVULSANT DRUG LEVEL BELOW THERAPEUTIC [None]
  - CONVULSION [None]
  - DRUG INTERACTION [None]
